FAERS Safety Report 8215685-1 (Version None)
Quarter: 2012Q1

REPORT INFORMATION
  Report Type: 
  Country: None (occurrence: None)
  Receive Date: 20120316
  Receipt Date: 20120314
  Transmission Date: 20120608
  Serious: Yes (Other)
  Sender: FDA-Public Use
  Company Number: US-PFIZER INC-2012068062

PATIENT
  Sex: Female

DRUGS (1)
  1. LIPITOR [Suspect]
     Dosage: UNK

REACTIONS (5)
  - FALL [None]
  - HEAD INJURY [None]
  - RIB FRACTURE [None]
  - TRAUMATIC LUNG INJURY [None]
  - SPEECH DISORDER [None]
